FAERS Safety Report 10022930 (Version 1)
Quarter: 2014Q1

REPORT INFORMATION
  Report Type: Spontaneous
  Country: US (occurrence: US)
  Receive Date: 20140319
  Receipt Date: 20140319
  Transmission Date: 20141002
  Serious: No
  Sender: FDA-Public Use
  Company Number: US-SA-2013SA135695

PATIENT
  Age: 59 Year
  Sex: Male

DRUGS (2)
  1. TRIAMCINOLONE ACETONIDE - WINTHROP [Suspect]
     Indication: HYPERSENSITIVITY
     Dosage: DOSAGE:1-2 SPRAYS
     Route: 065
  2. TRIAMCINOLONE ACETONIDE - WINTHROP [Suspect]
     Indication: POLYP
     Dosage: DOSAGE:1-2 SPRAYS
     Route: 065

REACTIONS (2)
  - Ageusia [Not Recovered/Not Resolved]
  - Anosmia [Not Recovered/Not Resolved]
